FAERS Safety Report 15216831 (Version 1)
Quarter: 2018Q3

REPORT INFORMATION
  Report Type: Spontaneous
  Country: GB (occurrence: GB)
  Receive Date: 20180730
  Receipt Date: 20180730
  Transmission Date: 20181010
  Serious: Yes (Hospitalization)
  Sender: FDA-Public Use
  Company Number: GB-PFIZER INC-2018303895

PATIENT
  Age: 70 Year
  Sex: Female

DRUGS (2)
  1. CLINDAMYCIN. [Concomitant]
     Active Substance: CLINDAMYCIN
     Indication: CAPNOCYTOPHAGA INFECTION
     Dosage: UNK
  2. MEROPENEM. [Suspect]
     Active Substance: MEROPENEM
     Indication: CAPNOCYTOPHAGA INFECTION
     Dosage: UNK

REACTIONS (4)
  - Extremity necrosis [Recovering/Resolving]
  - Coagulopathy [Recovering/Resolving]
  - Drug ineffective [Unknown]
  - Purpura [Unknown]
